FAERS Safety Report 9835501 (Version 1)
Quarter: 2014Q1

REPORT INFORMATION
  Report Type: Spontaneous
  Country: US (occurrence: US)
  Receive Date: 20140122
  Receipt Date: 20140122
  Transmission Date: 20141002
  Serious: No
  Sender: FDA-Public Use
  Company Number: US-BRISTOL-MYERS SQUIBB COMPANY-19705557

PATIENT
  Age: 89 Year
  Sex: Male
  Weight: 70.29 kg

DRUGS (9)
  1. ELIQUIS [Suspect]
  2. LEVOTHYROXINE [Concomitant]
  3. FERROUS SULFATE [Concomitant]
  4. VITAMIN D [Concomitant]
     Dosage: 1DF: 1000
  5. SUCRALFATE [Concomitant]
  6. ATORVASTATIN [Concomitant]
  7. LOSARTAN [Concomitant]
  8. SOTALOL [Concomitant]
  9. POTASSIUM [Concomitant]

REACTIONS (1)
  - Drug dose omission [Unknown]
